FAERS Safety Report 8618698-0 (Version None)
Quarter: 2012Q3

REPORT INFORMATION
  Report Type: 
  Country: None (occurrence: None)
  Receive Date: 20120815
  Receipt Date: 20120815
  Transmission Date: 20120928
  Serious: Yes (Hospitalization)
  Sender: FDA-Public Use
  Company Number: None

PATIENT
  Age: 56 Year
  Sex: Female
  Weight: 81.6475 kg

DRUGS (8)
  1. LEVOFLOXACIN [Concomitant]
  2. VITAMIN D2 [Concomitant]
  3. FLUCONAZOLE [Concomitant]
  4. EXJADE [Suspect]
     Indication: IRON OVERLOAD
     Dosage: 1500MG BY MOUTH DAILY
     Route: 048
     Dates: start: 20120607, end: 20120807
  5. . [Concomitant]
  6. OMEPRAZOLE [Concomitant]
  7. CARAFATE [Concomitant]
  8. AZITHROMYCIN [Concomitant]

REACTIONS (2)
  - LEUKAEMIA [None]
  - DEHYDRATION [None]
